FAERS Safety Report 8927050 (Version 1)
Quarter: 2012Q4

REPORT INFORMATION
  Report Type: 
  Country: ES (occurrence: ES)
  Receive Date: 20121127
  Receipt Date: 20121127
  Transmission Date: 20130627
  Serious: Yes (Hospitalization)
  Sender: FDA-Public Use
  Company Number: ES-PFIZER INC-2012295579

PATIENT
  Age: 65 Year
  Sex: Male

DRUGS (4)
  1. ORFIDAL [Suspect]
     Indication: ANXIETY
     Dosage: 3 mg, 1x/day
     Route: 048
     Dates: start: 20110409, end: 20110409
  2. ORFIDAL [Interacting]
     Indication: AGITATION
     Dosage: 1 mg, 1x/day
     Route: 048
     Dates: end: 20110409
  3. VENLAFAXINE HYDROCHLORIDE [Interacting]
     Indication: DEPRESSION
     Dosage: 150 mg, 1x/day
     Route: 048
     Dates: end: 20110410
  4. QUETIAPINE [Interacting]
     Indication: DEPRESSION
     Dosage: 100 mg, 1x/day
     Route: 048
     Dates: end: 20110410

REACTIONS (2)
  - Drug interaction [Recovered/Resolved]
  - Confusional state [Recovered/Resolved]
